FAERS Safety Report 26122142 (Version 2)
Quarter: 2025Q4

REPORT INFORMATION
  Report Type: Spontaneous
  Country: US (occurrence: US)
  Receive Date: 20251204
  Receipt Date: 20251219
  Transmission Date: 20260117
  Serious: Yes (Congenital Anomaly, Other)
  Sender: PFIZER
  Company Number: US-PFIZER INC-PV202500141513

PATIENT
  Age: 40 Week
  Sex: Female
  Weight: 2.919 kg

DRUGS (1)
  1. SULFASALAZINE [Suspect]
     Active Substance: SULFASALAZINE
     Dosage: UNK
     Route: 064

REACTIONS (2)
  - Cleft lip and palate [Not Recovered/Not Resolved]
  - Maternal exposure during pregnancy [Unknown]

NARRATIVE: CASE EVENT DATE: 20080101
